FAERS Safety Report 9843410 (Version 1)
Quarter: 2013Q4

REPORT INFORMATION
  Report Type: Spontaneous
  Country: US (occurrence: None)
  Receive Date: 20131219
  Receipt Date: 20131219
  Transmission Date: 20140711
  Serious: Yes (Other)
  Sender: FDA-Public Use
  Company Number: 163-20785-13074138

PATIENT
  Age: 60 Year
  Sex: Male
  Weight: 97.07 kg

DRUGS (11)
  1. THALOMID (THALIDOMIDE) (50 MILLIGRAM, CAPSULES) [Suspect]
     Indication: PLASMA CELL MYELOMA
     Dosage: 28 IN 28 D
     Route: 048
     Dates: start: 20120901, end: 20130629
  2. REVLIMID [Concomitant]
  3. TYLENOL WITH CODEINE [Concomitant]
  4. ZOLPIDEM TARTRATE [Concomitant]
  5. DEXAMETHASONE [Concomitant]
  6. GABAPENTIN [Concomitant]
  7. OMEPRAZOLE [Concomitant]
  8. LOVAZA [Concomitant]
  9. ALLOPURINOL [Concomitant]
  10. CYANOCOBALAMIN [Concomitant]
  11. ENOXAPARIN SODIUM [Concomitant]

REACTIONS (7)
  - Thrombosis [None]
  - Neuropathy peripheral [None]
  - Fatigue [None]
  - Weight increased [None]
  - Ageusia [None]
  - Alopecia [None]
  - Vision blurred [None]
